FAERS Safety Report 9485853 (Version 2)
Quarter: 2013Q3

REPORT INFORMATION
  Report Type: Report from Study
  Country: IN (occurrence: IN)
  Receive Date: 20130829
  Receipt Date: 20130916
  Transmission Date: 20140515
  Serious: Yes (Hospitalization, Other)
  Sender: FDA-Public Use
  Company Number: PHHY2013IN093577

PATIENT
  Age: 76 Year
  Sex: Male

DRUGS (26)
  1. ACLASTA [Suspect]
     Indication: OSTEOPOROTIC FRACTURE
     Dosage: 5MG/100ML/YEAR
     Route: 042
     Dates: start: 20130711
  2. CEFDIEL [Concomitant]
     Dosage: 2 DF, BID FOR 05 DAYS (1-0-1)
  3. NIMSAID-P [Concomitant]
     Dosage: 2 DF, BID, FOR 10 DAY (1-0-1)
  4. PANTRIN [Concomitant]
     Dosage: 2 DF BID, FOR 10 DAYS  (1-0-1)
  5. PHLOGAM [Concomitant]
     Dosage: 2 DF, BID, FOR 5 DAY  (1-0-1)
  6. CALCIMAX                           /01424301/ [Concomitant]
     Dosage: 1 DF, FOR 1 MONTH (0-0-1)
  7. BENEFICIALE [Concomitant]
     Dosage: 1 DF, FOR 1 MONTH  (0-1-0)
  8. CEFOXIT [Concomitant]
     Dosage: 1.5 UKN, UNK
  9. AMITAX [Concomitant]
     Dosage: 500 UNK, UNK
  10. ZAPOXIN [Concomitant]
     Dosage: 40 UKN, UNK
  11. TRAMADOL [Concomitant]
     Dosage: UNK UKN, UNK
  12. EMESET [Concomitant]
     Dosage: 1 DF, UNK
  13. SODIUM CHLORIDE [Concomitant]
     Dosage: 1 DF, UNK
  14. RINGER LACTATE                     /01126301/ [Concomitant]
     Dosage: 1 DF, UNK
  15. SODIUM CHLORIDE + DEXTROSE [Concomitant]
     Dosage: 1 DF, UNK
  16. DISTILLED WATER [Concomitant]
     Dosage: 1 DF, UNK
  17. DUPHALAC                                /NET/ [Concomitant]
     Dosage: 1 DF, UNK
  18. FUSIWAL [Concomitant]
     Dosage: 1 DF, UNK
  19. DYNAPAR                            /06415801/ [Concomitant]
     Dosage: 1 DF, UNK
  20. RANTAC [Concomitant]
     Dosage: 1 DF, UNK
  21. ANAWIN HEAVY [Concomitant]
     Dosage: 1 DF, UNK
  22. FORTWIN//PENTAZOCINE HYDROCHLORIDE [Concomitant]
     Dosage: 1 DF, UNK
  23. PYROLATE [Concomitant]
     Dosage: 1 DF, UNK
  24. ATROPIN [Concomitant]
     Dosage: 1 DF, UNK
  25. XYLOCAINE [Concomitant]
     Dosage: 1 DF, UNK
  26. ECOSPRIN [Concomitant]
     Dosage: 1 DF, UNK

REACTIONS (15)
  - Hip fracture [Not Recovered/Not Resolved]
  - Fall [Unknown]
  - Joint injury [Unknown]
  - Femoral neck fracture [Unknown]
  - Left ventricular hypertrophy [Unknown]
  - Diastolic dysfunction [Unknown]
  - Aortic valve sclerosis [Unknown]
  - Mitral valve disease [Unknown]
  - Lymphocyte count decreased [Unknown]
  - Mean cell haemoglobin concentration increased [Unknown]
  - Neutrophilia [Unknown]
  - Coagulation time shortened [Unknown]
  - Albumin globulin ratio decreased [Unknown]
  - Platelet count decreased [Unknown]
  - Red blood cell count decreased [Unknown]
